FAERS Safety Report 13960409 (Version 2)
Quarter: 2017Q4

REPORT INFORMATION
  Report Type: Spontaneous
  Country: US (occurrence: US)
  Receive Date: 20170912
  Receipt Date: 20171106
  Transmission Date: 20180320
  Serious: Yes (Other)
  Sender: FDA-Public Use
  Company Number: US-SA-2017SA166374

PATIENT
  Age: 62 Year
  Sex: Male

DRUGS (1)
  1. LANTUS [Suspect]
     Active Substance: INSULIN GLARGINE
     Indication: DIABETES MELLITUS
     Dosage: DOSE:25 UNIT(S)
     Route: 051
     Dates: end: 20170827

REACTIONS (3)
  - Myocardial infarction [Unknown]
  - Gastrointestinal disorder [Unknown]
  - Product use issue [Unknown]
